FAERS Safety Report 8252242-5 (Version None)
Quarter: 2012Q2

REPORT INFORMATION
  Report Type: 
  Country: None (occurrence: None)
  Receive Date: 20120402
  Receipt Date: 20110912
  Transmission Date: 20120825
  Serious: No
  Sender: FDA-Public Use
  Company Number: US-ABBOTT-11P-163-0854421-00

PATIENT
  Age: 85 Year
  Sex: Male
  Weight: 73.548 kg

DRUGS (2)
  1. ISOGENICS [Concomitant]
     Indication: SUPPLEMENTATION THERAPY
  2. ANDROGEL [Suspect]
     Indication: BLOOD TESTOSTERONE DECREASED
     Dosage: PACKETS
     Dates: start: 20110101, end: 20110101

REACTIONS (2)
  - DRUG INEFFECTIVE [None]
  - MALE SEXUAL DYSFUNCTION [None]
